FAERS Safety Report 10654270 (Version 1)
Quarter: 2014Q4

REPORT INFORMATION
  Report Type: Spontaneous
  Country: IN (occurrence: None)
  Receive Date: 20141212
  Receipt Date: 20141212
  Transmission Date: 20150529
  Serious: Yes (Death, Other)
  Sender: FDA-Public Use
  Company Number: FK201406075

PATIENT
  Age: 52 Year
  Sex: Female

DRUGS (7)
  1. CYCLOPHOSPHAMIDE (CYCLOPHOSPHAMIDE) (CYCLOPHOSPHAMIDE) [Suspect]
     Active Substance: CYCLOPHOSPHAMIDE
     Indication: MONONEUROPATHY MULTIPLEX
     Route: 042
  2. PREDNISOLONE (PREDNISOLONE) (PREDNISOLONE) [Suspect]
     Active Substance: PREDNISOLONE
     Indication: RHEUMATOID ARTHRITIS
     Dates: start: 201109
  3. BACTRIM [Suspect]
     Active Substance: SULFAMETHOXAZOLE\TRIMETHOPRIM
     Indication: GRANULOMA
  4. BACTRIM [Suspect]
     Active Substance: SULFAMETHOXAZOLE\TRIMETHOPRIM
     Indication: MONONEUROPATHY MULTIPLEX
  5. METHYLPREDISOLONE [Concomitant]
     Active Substance: METHYLPREDNISOLONE
  6. METHOTREXATE (METHOTREXATE) (METHOTREXATE) [Suspect]
     Active Substance: METHOTREXATE
     Indication: RHEUMATOID ARTHRITIS
     Dates: start: 201109
  7. CYCLOPHOSPHAMIDE (CYCLOPHOSPHAMIDE) (CYCLOPHOSPHAMIDE) [Suspect]
     Active Substance: CYCLOPHOSPHAMIDE
     Indication: GRANULOMA
     Route: 042

REACTIONS (15)
  - Vasculitis [None]
  - Paraesthesia [None]
  - Haemoglobin decreased [None]
  - Peroneal nerve palsy [None]
  - Sensory loss [None]
  - Granuloma [None]
  - Oropharyngeal candidiasis [None]
  - Pallor [None]
  - Aspergillus infection [None]
  - Tachycardia [None]
  - Otitis media [None]
  - Disseminated intravascular coagulation [None]
  - Blood glucose increased [None]
  - Tachypnoea [None]
  - Blood pressure increased [None]
